FAERS Safety Report 9810057 (Version 1)
Quarter: 2014Q1

REPORT INFORMATION
  Report Type: Spontaneous
  Country: US (occurrence: US)
  Receive Date: 20140110
  Receipt Date: 20140110
  Transmission Date: 20141002
  Serious: Yes (Other)
  Sender: FDA-Public Use
  Company Number: US-SANOFI-AVENTIS-2013SA068360

PATIENT
  Sex: 0

DRUGS (1)
  1. PLAVIX [Suspect]
     Route: 065
     Dates: start: 200601, end: 201109

REACTIONS (2)
  - Gastrointestinal haemorrhage [Unknown]
  - Ulcer haemorrhage [Unknown]
